FAERS Safety Report 16190949 (Version 2)
Quarter: 2019Q3

REPORT INFORMATION
  Report Type: Spontaneous
  Country: JP (occurrence: JP)
  Receive Date: 20190412
  Receipt Date: 20190705
  Transmission Date: 20191004
  Serious: Yes (Other)
  Sender: FDA-Public Use
  Company Number: JP-009507513-1904JPN001162J

PATIENT
  Age: 91 Year
  Sex: Male

DRUGS (2)
  1. PROPECIA [Suspect]
     Active Substance: FINASTERIDE
     Indication: ANDROGENETIC ALOPECIA
     Dosage: UNK
     Route: 048
     Dates: start: 201706
  2. PROPECIA [Suspect]
     Active Substance: FINASTERIDE
     Dosage: 1 DOSAGE FORM, ONCE 1 TABLET, ONCE OR TWICE A WEEK
     Route: 048

REACTIONS (2)
  - Prostate cancer [Unknown]
  - Prostatic specific antigen decreased [Not Recovered/Not Resolved]

NARRATIVE: CASE EVENT DATE: 201706
